FAERS Safety Report 5748312-3 (Version None)
Quarter: 2008Q2

REPORT INFORMATION
  Report Type: 
  Country: None (occurrence: None)
  Receive Date: 20080520
  Receipt Date: 20080505
  Transmission Date: 20081010
  Serious: Yes (Other)
  Sender: FDA-Public Use
  Company Number: 2008SP008717

PATIENT
  Age: 65 Year
  Sex: Female

DRUGS (6)
  1. MIRALAX [Suspect]
     Indication: INTESTINAL FUNCTIONAL DISORDER
     Dosage: 17 GM;ONCE;PO
     Route: 048
  2. PLAVIX [Concomitant]
  3. DARVOCET [Concomitant]
  4. TRANXEN [Concomitant]
  5. PRILOSEC [Concomitant]
  6. BLOOD PRESSURE [Concomitant]

REACTIONS (5)
  - GLOSSODYNIA [None]
  - PAIN IN EXTREMITY [None]
  - PAIN IN JAW [None]
  - PRURITUS [None]
  - URTICARIA [None]
